FAERS Safety Report 4881324-0 (Version None)
Quarter: 2005Q4

REPORT INFORMATION
  Report Type: 
  Country: None (occurrence: None)
  Receive Date: 20051212
  Receipt Date: 20050815
  Transmission Date: 20060501
  Serious: Yes (Other)
  Sender: FDA-Public Use
  Company Number: 2005-01751

PATIENT
  Age: 59 Year
  Sex: Female
  Weight: 104.3 kg

DRUGS (6)
  1. VELCADE [Suspect]
     Indication: MULTIPLE MYELOMA
     Dosage: 1.30, 2/WEEK, INTRAVENOUS
     Route: 042
     Dates: start: 20050531
  2. ALLOPURINOL [Concomitant]
  3. ALTACE [Concomitant]
  4. MAXZIDE [Concomitant]
  5. ACIPHEX [Concomitant]
  6. VITAMIN B6 [Concomitant]

REACTIONS (4)
  - BURNING SENSATION [None]
  - HYPOAESTHESIA [None]
  - PAIN IN EXTREMITY [None]
  - PARAESTHESIA [None]
